FAERS Safety Report 23187583 (Version 1)
Quarter: 2023Q4

REPORT INFORMATION
  Report Type: Spontaneous
  Country: US (occurrence: None)
  Receive Date: 20231115
  Receipt Date: 20231115
  Transmission Date: 20240110
  Serious: No
  Sender: FDA-Public Use
  Company Number: None

PATIENT
  Sex: Female

DRUGS (2)
  1. ENBREL [Suspect]
     Active Substance: ETANERCEPT
     Indication: Synovitis
     Dosage: OTHER FREQUENCY : Q 7DAYS;?
     Route: 058
     Dates: start: 20221230
  2. ENBREL [Suspect]
     Active Substance: ETANERCEPT
     Indication: Tenosynovitis

REACTIONS (5)
  - Loss of therapeutic response [None]
  - Drug ineffective [None]
  - Inability to afford medication [None]
  - Arthralgia [None]
  - Joint swelling [None]
